FAERS Safety Report 10723607 (Version 4)
Quarter: 2015Q4

REPORT INFORMATION
  Report Type: Report from Study
  Country: IT (occurrence: IT)
  Receive Date: 20150120
  Receipt Date: 20151109
  Transmission Date: 20160304
  Serious: Yes (Hospitalization)
  Sender: FDA-Public Use
  Company Number: PHHY2015IT003857

PATIENT
  Age: 43 Year
  Sex: Female
  Weight: 63 kg

DRUGS (3)
  1. TASIGNA [Suspect]
     Active Substance: NILOTINIB
     Indication: CHRONIC MYELOID LEUKAEMIA
     Dosage: 600 MG, BID
     Route: 048
     Dates: start: 20101130, end: 20150108
  2. AMILORIDE HCL W/ HYDROCHLOROTHIAZIDE [Concomitant]
     Active Substance: AMILORIDE HYDROCHLORIDE\HYDROCHLOROTHIAZIDE
     Indication: FLUID RETENTION
     Dosage: 1 DF, UNK
     Route: 048
     Dates: start: 20101116
  3. MESALAZINE [Concomitant]
     Active Substance: MESALAMINE
     Indication: DIVERTICULITIS
     Dosage: 400 MG, UNK
     Route: 048
     Dates: start: 20140729

REACTIONS (5)
  - Vomiting [Unknown]
  - Abortion [Recovered/Resolved]
  - Asthenia [Unknown]
  - Nausea [Unknown]
  - Maternal exposure during pregnancy [Unknown]

NARRATIVE: CASE EVENT DATE: 20150101
